FAERS Safety Report 19432946 (Version 2)
Quarter: 2021Q3

REPORT INFORMATION
  Report Type: Spontaneous
  Country: US (occurrence: US)
  Receive Date: 20210617
  Receipt Date: 20210715
  Transmission Date: 20211014
  Serious: No
  Sender: FDA-Public Use
  Company Number: US-DSJP-DSU-2021-118446

PATIENT
  Age: 50 Year
  Sex: Female

DRUGS (5)
  1. TURALIO [Suspect]
     Active Substance: PEXIDARTINIB HYDROCHLORIDE
     Indication: GIANT CELL TUMOUR OF TENDON SHEATH
     Dosage: 400 MG, QD
     Route: 048
     Dates: start: 201910
  2. TURALIO [Suspect]
     Active Substance: PEXIDARTINIB HYDROCHLORIDE
     Dosage: 400 MG, QD
     Route: 048
     Dates: start: 202009
  3. PROGESTERONE. [Concomitant]
     Active Substance: PROGESTERONE
     Indication: HAEMORRHAGE
     Dosage: UNK
     Route: 065
     Dates: start: 201910
  4. TURALIO [Suspect]
     Active Substance: PEXIDARTINIB HYDROCHLORIDE
     Dosage: 600 MG, QD
     Route: 048
     Dates: start: 2019
  5. TURALIO [Suspect]
     Active Substance: PEXIDARTINIB HYDROCHLORIDE
     Dosage: 800 MG, QD
     Route: 048
     Dates: start: 2019, end: 202008

REACTIONS (6)
  - Blood cholesterol increased [Unknown]
  - Uterine polyp [Unknown]
  - Fatigue [Unknown]
  - Pyrexia [Recovered/Resolved]
  - Hair colour changes [Unknown]
  - Periorbital oedema [Unknown]

NARRATIVE: CASE EVENT DATE: 201911
